FAERS Safety Report 10649940 (Version 3)
Quarter: 2014Q4

REPORT INFORMATION
  Report Type: Report from Study
  Country: US (occurrence: US)
  Receive Date: 20141212
  Receipt Date: 20141219
  Transmission Date: 20150529
  Serious: Yes (Death, Hospitalization)
  Sender: FDA-Public Use
  Company Number: US-009507513-1410USA014022

PATIENT
  Age: 67 Year
  Sex: Male
  Weight: 87.2 kg

DRUGS (15)
  1. TAMSULOSIN HYDROCHLORIDE. [Concomitant]
     Active Substance: TAMSULOSIN HYDROCHLORIDE
     Indication: BENIGN PROSTATIC HYPERPLASIA
     Dosage: 0.4 MG, QD
     Route: 048
     Dates: start: 20140324
  2. PEMBROLIZUMAB. [Suspect]
     Active Substance: PEMBROLIZUMAB
     Dosage: 10 MG/KG, QOW
     Route: 042
     Dates: start: 20141014, end: 20141014
  3. REMERON SOLTAB [Concomitant]
     Active Substance: MIRTAZAPINE
     Indication: SLEEP DISORDER
  4. REMERON SOLTAB [Concomitant]
     Active Substance: MIRTAZAPINE
     Indication: DEPRESSION
  5. PEMBROLIZUMAB. [Suspect]
     Active Substance: PEMBROLIZUMAB
     Indication: HEAD AND NECK CANCER
     Dosage: 10 MG/KG, QOW
     Route: 042
     Dates: start: 20140925, end: 20140925
  6. REMERON SOLTAB [Concomitant]
     Active Substance: MIRTAZAPINE
     Indication: DECREASED APPETITE
     Dosage: 30 MG, QD
     Route: 048
     Dates: start: 20140701
  7. LORAZEPAM. [Concomitant]
     Active Substance: LORAZEPAM
     Indication: ANXIETY
     Dosage: 1 MG, QD
     Route: 048
     Dates: start: 20140402
  8. ONDANSETRON [Concomitant]
     Active Substance: ONDANSETRON
     Indication: NAUSEA
     Dosage: 8 MICROGRAM, TID
     Route: 048
     Dates: start: 20140424
  9. METFORMIN [Concomitant]
     Active Substance: METFORMIN HYDROCHLORIDE
     Indication: DIABETES MELLITUS
     Dosage: 1000 MG, BID
     Route: 048
     Dates: start: 20140409
  10. REMERON SOLTAB [Concomitant]
     Active Substance: MIRTAZAPINE
     Indication: ANXIETY
  11. SENNA [Concomitant]
     Active Substance: SENNA LEAF\SENNOSIDES\SENNOSIDES A AND B
     Indication: CONSTIPATION
     Dosage: PRN,TOTAL DAILY DOSE 8.6 MG
     Route: 048
     Dates: start: 20140409
  12. DIPHENHYDRAMINE HYDROCHLORIDE. [Concomitant]
     Active Substance: DIPHENHYDRAMINE HYDROCHLORIDE
     Indication: MUCOSAL INFLAMMATION
     Dosage: PRN, TOTAL DAILY DOSE: 25 MG
     Route: 048
     Dates: start: 20140410
  13. DIPHENHYDRAMINE HYDROCHLORIDE. [Concomitant]
     Active Substance: DIPHENHYDRAMINE HYDROCHLORIDE
     Indication: ORAL PAIN
  14. HYDROMORPHONE [Concomitant]
     Active Substance: HYDROMORPHONE
     Indication: ORAL PAIN
     Dosage: FREQUENCY OTHER,TOTAL DAILY DOSE 24 MG
     Route: 048
     Dates: start: 20140625
  15. ONDANSETRON [Concomitant]
     Active Substance: ONDANSETRON
     Indication: VOMITING

REACTIONS (2)
  - Dyspnoea [Fatal]
  - Embolism [Not Recovered/Not Resolved]

NARRATIVE: CASE EVENT DATE: 20141021
